FAERS Safety Report 12254397 (Version 3)
Quarter: 2016Q2

REPORT INFORMATION
  Report Type: Spontaneous
  Country: US (occurrence: US)
  Receive Date: 20160411
  Receipt Date: 20160504
  Transmission Date: 20160815
  Serious: Yes (Other)
  Sender: FDA-Public Use
  Company Number: US-BAYER-2016-067215

PATIENT
  Age: 49 Year
  Sex: Female

DRUGS (2)
  1. MIRENA [Suspect]
     Active Substance: LEVONORGESTREL
     Indication: MENORRHAGIA
  2. MIRENA [Suspect]
     Active Substance: LEVONORGESTREL
     Indication: CONTRACEPTION
     Dosage: 20 MCG/24HR, CONT
     Route: 015
     Dates: start: 201412, end: 20160405

REACTIONS (38)
  - Feeling abnormal [None]
  - Breast swelling [None]
  - Amenorrhoea [None]
  - Alopecia [Not Recovered/Not Resolved]
  - Vaginal discharge [Recovered/Resolved]
  - Fear [Not Recovered/Not Resolved]
  - Breast pain [None]
  - Amnesia [None]
  - Swelling face [None]
  - Breast tenderness [None]
  - Blood magnesium decreased [Not Recovered/Not Resolved]
  - Uterine pain [Not Recovered/Not Resolved]
  - Pruritus generalised [Not Recovered/Not Resolved]
  - Blood insulin abnormal [None]
  - Blood pressure increased [Not Recovered/Not Resolved]
  - Gait disturbance [None]
  - Progesterone decreased [Not Recovered/Not Resolved]
  - Insulin resistance [Not Recovered/Not Resolved]
  - Hirsutism [Not Recovered/Not Resolved]
  - Uterine disorder [None]
  - Toxicity to various agents [None]
  - Confusional state [None]
  - Peripheral swelling [None]
  - Pain [None]
  - Joint swelling [None]
  - Weight loss poor [Not Recovered/Not Resolved]
  - Blood potassium decreased [Not Recovered/Not Resolved]
  - Blood oestrogen increased [Not Recovered/Not Resolved]
  - Loss of libido [Not Recovered/Not Resolved]
  - Drug hypersensitivity [Not Recovered/Not Resolved]
  - Metabolic disorder [Not Recovered/Not Resolved]
  - Abdominal distension [None]
  - Arthralgia [None]
  - Fatigue [None]
  - Weight increased [Not Recovered/Not Resolved]
  - Hunger [Not Recovered/Not Resolved]
  - Malaise [Not Recovered/Not Resolved]
  - Thyroid disorder [None]

NARRATIVE: CASE EVENT DATE: 201501
